FAERS Safety Report 15534903 (Version 1)
Quarter: 2018Q4

REPORT INFORMATION
  Report Type: Spontaneous
  Country: US (occurrence: US)
  Receive Date: 20181022
  Receipt Date: 20181022
  Transmission Date: 20190205
  Serious: No
  Sender: FDA-Public Use
  Company Number: US-TEVA-2018-US-848497

PATIENT

DRUGS (1)
  1. MICONAZOLE. [Suspect]
     Active Substance: MICONAZOLE
     Indication: VULVOVAGINAL PRURITUS
     Route: 067
     Dates: start: 20171211

REACTIONS (8)
  - Vulvovaginal erythema [Recovered/Resolved]
  - Vulvovaginal swelling [Recovered/Resolved]
  - Urticaria [Unknown]
  - Pruritus [Unknown]
  - Vulvovaginal discomfort [Recovered/Resolved]
  - Burning sensation [Unknown]
  - Drug ineffective [Unknown]
  - Hypersensitivity [Unknown]

NARRATIVE: CASE EVENT DATE: 20171211
